FAERS Safety Report 4698867-5 (Version None)
Quarter: 2005Q2

REPORT INFORMATION
  Report Type: 
  Country: None (occurrence: None)
  Receive Date: 20050623
  Receipt Date: 20050609
  Transmission Date: 20051028
  Serious: Yes (Hospitalization)
  Sender: FDA-Public Use
  Company Number: 215183

PATIENT
  Age: 50 Year
  Sex: Male
  Weight: 53.5 kg

DRUGS (13)
  1. RITUXAN [Suspect]
     Indication: NON-HODGKIN'S LYMPHOMA
     Dosage: 536 MG, IV DRIP
     Route: 041
     Dates: start: 20011201, end: 20020207
  2. CARBOPLATIN [Suspect]
     Indication: NON-HODGKIN'S LYMPHOMA
     Dosage: 385 MG
     Dates: start: 20011203, end: 20020213
  3. DEXAMETHASONE [Suspect]
     Indication: NON-HODGKIN'S LYMPHOMA
     Dosage: 40 MG
     Dates: start: 20011203, end: 20020213
  4. ETOPOSIDE [Suspect]
     Indication: NON-HODGKIN'S LYMPHOMA
     Dosage: 150 MG
     Dates: start: 20011203, end: 20010213
  5. IRINOTECAN HCL [Suspect]
     Indication: NON-HODGKIN'S LYMPHOMA
     Dosage: 38.5 MG
     Dates: start: 20011203, end: 20020213
  6. CETAPRIL (ALACEPRIL) [Concomitant]
  7. ADALAT [Concomitant]
  8. LASIX [Concomitant]
  9. ALDACTONE [Concomitant]
  10. RESTAMIN (CHLORPHENIRAMINE MALEATE) [Concomitant]
  11. LOXONIN (LOXOPROFEN SODIUM) [Concomitant]
  12. CALONAL (ACETAMINOPHEN) [Concomitant]
  13. CELESTAMINE (DEXCHLORPHENIRAMINE MALEATE, BETAMETHASONE) [Concomitant]

REACTIONS (4)
  - BLOOD LACTATE DEHYDROGENASE INCREASED [None]
  - DYSPNOEA [None]
  - NEUTROPENIA [None]
  - WHITE BLOOD CELL COUNT DECREASED [None]
